FAERS Safety Report 6706442-3 (Version None)
Quarter: 2010Q2

REPORT INFORMATION
  Report Type: 
  Country: None (occurrence: None)
  Receive Date: 20100503
  Receipt Date: 20100421
  Transmission Date: 20101027
  Serious: Yes (Hospitalization)
  Sender: FDA-Public Use
  Company Number: JP-SANOFI-AVENTIS-2010SA020593

PATIENT
  Age: 73 Year
  Sex: Male
  Weight: 52 kg

DRUGS (5)
  1. ELPLAT [Suspect]
     Indication: RECTAL CANCER
     Route: 041
     Dates: start: 20091030, end: 20091030
  2. ELPLAT [Suspect]
     Route: 041
     Dates: start: 20100402, end: 20100402
  3. XELODA [Concomitant]
     Indication: RECTAL CANCER
     Route: 048
     Dates: start: 20091030, end: 20091225
  4. XELODA [Concomitant]
     Route: 048
     Dates: start: 20100108, end: 20100212
  5. XELODA [Concomitant]
     Route: 048
     Dates: start: 20100219, end: 20100305

REACTIONS (2)
  - BLOOD PRESSURE DECREASED [None]
  - PRINZMETAL ANGINA [None]
